FAERS Safety Report 6928456-0 (Version None)
Quarter: 2010Q3

REPORT INFORMATION
  Report Type: 
  Country: None (occurrence: None)
  Receive Date: 20100812
  Receipt Date: 20100730
  Transmission Date: 20110219
  Serious: Yes (Hospitalization)
  Sender: FDA-Public Use
  Company Number: LEO-2010-00703

PATIENT
  Age: 74 Year
  Sex: Male

DRUGS (4)
  1. INNOHEP [Suspect]
     Indication: PRODUCT USED FOR UNKNOWN INDICATION
     Dosage: 24000 IU (12000 IU, 2 IN 1 D, SUBCUTANEOUS
     Route: 058
     Dates: start: 20100620, end: 20100623
  2. KEPPRA [Concomitant]
  3. URBANYL (CLOBAZAM) [Concomitant]
  4. PREVISCAN (FLUINDIONE) [Concomitant]

REACTIONS (8)
  - ANAEMIA [None]
  - BLOOD CREATININE INCREASED [None]
  - BLOOD PRESSURE DIASTOLIC DECREASED [None]
  - CONJUNCTIVAL PALLOR [None]
  - INTERNATIONAL NORMALISED RATIO INCREASED [None]
  - INTESTINAL HAEMORRHAGE [None]
  - PERITONEAL HAEMATOMA [None]
  - SYNCOPE [None]
